FAERS Safety Report 15138950 (Version 1)
Quarter: 2018Q3

REPORT INFORMATION
  Report Type: Spontaneous
  Country: CN (occurrence: CN)
  Receive Date: 20180713
  Receipt Date: 20180713
  Transmission Date: 20181010
  Serious: Yes (Hospitalization)
  Sender: FDA-Public Use
  Company Number: US-ASTRAZENECA-2018SE87226

PATIENT
  Age: 39 Year
  Sex: Female
  Weight: 57 kg

DRUGS (2)
  1. NEXIUM [Suspect]
     Active Substance: ESOMEPRAZOLE MAGNESIUM
     Indication: INTERVERTEBRAL DISC PROTRUSION
     Route: 048
     Dates: start: 20180322, end: 20180401
  2. CELEBREX [Suspect]
     Active Substance: CELECOXIB
     Indication: INTERVERTEBRAL DISC PROTRUSION
     Route: 048
     Dates: start: 20180322, end: 20180401

REACTIONS (1)
  - Dermatitis allergic [Recovering/Resolving]

NARRATIVE: CASE EVENT DATE: 20180401
